FAERS Safety Report 14633358 (Version 1)
Quarter: 2018Q1

REPORT INFORMATION
  Report Type: Spontaneous
  Country: DE (occurrence: DE)
  Receive Date: 20180313
  Receipt Date: 20180313
  Transmission Date: 20180509
  Serious: Yes (Hospitalization, Other)
  Sender: FDA-Public Use
  Company Number: DE-ASTRAZENECA-2018SE29413

PATIENT
  Age: 64 Year
  Sex: Female

DRUGS (8)
  1. CIPRALEX [Interacting]
     Active Substance: ESCITALOPRAM OXALATE
     Route: 065
     Dates: start: 20170720
  2. DELIX [Concomitant]
     Active Substance: RAMIPRIL
     Dates: start: 20170718
  3. PANTOPRAZOLE [Concomitant]
     Active Substance: PANTOPRAZOLE
     Dates: start: 20170624
  4. LEVOMEPROMAZINE [Concomitant]
     Active Substance: LEVOMEPROMAZINE
     Dates: start: 20170719, end: 20170720
  5. EISENSULFAT [Concomitant]
     Dates: start: 20170706
  6. KALINOR (POTASSIUM CHLORIDE) [Concomitant]
     Active Substance: POTASSIUM CHLORIDE
     Dosage: 1-0-0
     Dates: start: 20170718
  7. SEROQUEL [Suspect]
     Active Substance: QUETIAPINE FUMARATE
     Dosage: 125 DOSAGE FORM, 50-25-50
     Route: 048
     Dates: start: 20170628
  8. LEPONEX [Concomitant]
     Active Substance: CLOZAPINE
     Dosage: 100-0-75
     Dates: start: 20170718, end: 20170720

REACTIONS (2)
  - Drug interaction [Unknown]
  - Acute abdomen [Recovering/Resolving]

NARRATIVE: CASE EVENT DATE: 20170720
